FAERS Safety Report 14415012 (Version 1)
Quarter: 2018Q1

REPORT INFORMATION
  Report Type: Spontaneous
  Country: US (occurrence: US)
  Receive Date: 20180118
  Receipt Date: 20180118
  Transmission Date: 20180509
  Serious: Yes (Hospitalization)
  Sender: FDA-Public Use
  Company Number: None

PATIENT
  Age: 76 Year
  Sex: Male

DRUGS (1)
  1. MEGESTROL [Suspect]
     Active Substance: MEGESTROL
     Indication: DECREASED APPETITE
     Route: 048
     Dates: start: 20170822, end: 20171229

REACTIONS (3)
  - Peripheral artery occlusion [None]
  - Thrombosis [None]
  - Paraesthesia [None]

NARRATIVE: CASE EVENT DATE: 20171229
